FAERS Safety Report 8350888-7 (Version None)
Quarter: 2012Q2

REPORT INFORMATION
  Report Type: 
  Country: None (occurrence: None)
  Receive Date: 20120510
  Receipt Date: 20120509
  Transmission Date: 20120825
  Serious: Yes (Other)
  Sender: FDA-Public Use
  Company Number: IT-BAYER-2012-045593

PATIENT
  Age: 71 Year
  Sex: Male

DRUGS (1)
  1. NEXAVAR [Suspect]
     Indication: HEPATIC NEOPLASM MALIGNANT
     Dosage: DAILY DOSE 800 MG
     Route: 048
     Dates: start: 20120427, end: 20120501

REACTIONS (5)
  - INTESTINAL OBSTRUCTION [None]
  - ABDOMINAL PAIN [None]
  - DECREASED APPETITE [None]
  - ASTHENIA [None]
  - DEHYDRATION [None]
